FAERS Safety Report 18559733 (Version 1)
Quarter: 2020Q4

REPORT INFORMATION
  Report Type: Spontaneous
  Country: US (occurrence: US)
  Receive Date: 20201129
  Receipt Date: 20201129
  Transmission Date: 20210114
  Serious: Yes (Hospitalization)
  Sender: FDA-Public Use
  Company Number: None

PATIENT
  Age: 49 Year
  Sex: Male
  Weight: 204.75 kg

DRUGS (8)
  1. OMEPRAZOLE. [Concomitant]
     Active Substance: OMEPRAZOLE
  2. SPIRONOLACTONE. [Concomitant]
     Active Substance: SPIRONOLACTONE
  3. ATENOLOL. [Concomitant]
     Active Substance: ATENOLOL
  4. SUBOXONE [Concomitant]
     Active Substance: BUPRENORPHINE HYDROCHLORIDE\NALOXONE HYDROCHLORIDE
  5. METOLAZONE. [Concomitant]
     Active Substance: METOLAZONE
  6. TORSEMIDE. [Concomitant]
     Active Substance: TORSEMIDE
  7. TOPIRAMATE. [Suspect]
     Active Substance: TOPIRAMATE
     Dates: start: 20201101, end: 20201125
  8. LISINOPRIL. [Concomitant]
     Active Substance: LISINOPRIL

REACTIONS (6)
  - Taste disorder [None]
  - Ataxia [None]
  - Paraesthesia [None]
  - Skin burning sensation [None]
  - Amnesia [None]
  - Fall [None]

NARRATIVE: CASE EVENT DATE: 20201128
